FAERS Safety Report 7551314-8 (Version None)
Quarter: 2011Q2

REPORT INFORMATION
  Report Type: 
  Country: None (occurrence: None)
  Receive Date: 20110616
  Receipt Date: 20110613
  Transmission Date: 20111010
  Serious: Yes (Other)
  Sender: FDA-Public Use
  Company Number: US-PFIZER INC-2011130160

PATIENT
  Sex: Female

DRUGS (10)
  1. DARIFENACIN [Concomitant]
     Dosage: UNK
  2. TRAZODONE [Concomitant]
     Dosage: UNK
  3. TRAMADOL [Concomitant]
     Dosage: UNK
  4. FAMOTIDINE [Concomitant]
     Dosage: UNK
  5. ALPRAZOLAM [Concomitant]
     Dosage: UNK
  6. GABAPENTIN [Concomitant]
     Dosage: UNK
  7. FOSAMAX [Suspect]
     Indication: OSTEOPOROSIS
     Dosage: 70 MG, WEEKLY (ONCE WEEKLY)
     Route: 048
  8. VITAMIN D [Concomitant]
     Dosage: UNK
  9. CELEBREX [Suspect]
     Dosage: UNK
  10. AMITRIPTYLINE [Concomitant]
     Dosage: UNK

REACTIONS (6)
  - PAIN [None]
  - MUSCLE SPASMS [None]
  - SPINAL FRACTURE [None]
  - FALL [None]
  - ARTHRALGIA [None]
  - BACK PAIN [None]
